FAERS Safety Report 9852043 (Version 2)
Quarter: 2014Q1

REPORT INFORMATION
  Report Type: Spontaneous
  Country: US (occurrence: US)
  Receive Date: 20140129
  Receipt Date: 20140129
  Transmission Date: 20141002
  Serious: No
  Sender: FDA-Public Use
  Company Number: US-PFIZER INC-2011160201

PATIENT
  Age: 53 Year
  Sex: Female

DRUGS (8)
  1. NEURONTIN [Suspect]
     Indication: FIBROMYALGIA
     Dosage: UNK 3X/DAY
     Dates: start: 2005, end: 2005
  2. LYRICA [Suspect]
     Indication: FIBROMYALGIA
     Dosage: 75 MG, 3X/DAY
     Route: 048
     Dates: start: 2006
  3. LYRICA [Suspect]
     Indication: NERVE INJURY
     Dosage: 75 MG, 3X/DAY
     Route: 048
  4. FLEXERIL [Concomitant]
     Indication: ARTHRITIS
     Dosage: 10 MG, 3X/DAY
  5. NABUMETONE [Concomitant]
     Dosage: UNK
  6. ULTRAM [Concomitant]
     Dosage: UNK
  7. LEVOTHYROXINE [Concomitant]
     Indication: HYPOTHYROIDISM
     Dosage: UNK
  8. CYTOMEL [Concomitant]
     Dosage: UNK

REACTIONS (3)
  - Off label use [Unknown]
  - Pain [Unknown]
  - Weight increased [Unknown]
